FAERS Safety Report 5761948-9 (Version None)
Quarter: 2008Q2

REPORT INFORMATION
  Report Type: 
  Country: None (occurrence: None)
  Receive Date: 20080603
  Receipt Date: 20070928
  Transmission Date: 20081010
  Serious: Yes (Death, Hospitalization)
  Sender: FDA-Public Use
  Company Number: 2008AP001294

PATIENT
  Age: 79 Year
  Sex: Female

DRUGS (6)
  1. TERBINAFINE HCL [Suspect]
     Indication: FUNGAL INFECTION
     Dosage: 250 MG; QD; PO
     Route: 048
  2. ACETYLSALICYLIC ACID SRT [Concomitant]
  3. METHYLDOPA [Concomitant]
  4. PINDOLOL [Concomitant]
  5. TEMAZEPAM [Concomitant]
  6. IRBESARTAN [Concomitant]

REACTIONS (2)
  - AGRANULOCYTOSIS [None]
  - SEPTIC SHOCK [None]
